FAERS Safety Report 5166482-5 (Version None)
Quarter: 2006Q4

REPORT INFORMATION
  Report Type: 
  Country: None (occurrence: None)
  Receive Date: 20061207
  Receipt Date: 20061127
  Transmission Date: 20070319
  Serious: Yes (Hospitalization)
  Sender: FDA-Public Use
  Company Number: PHRM2006FR03170

PATIENT
  Age: 87 Year
  Sex: Female

DRUGS (4)
  1. ALDACTONE [Suspect]
     Dosage: 25 MG/DAY
     Route: 048
     Dates: start: 20061024, end: 20061030
  2. LASIX [Suspect]
     Dosage: 40 MG, TID
     Route: 048
     Dates: start: 20061024
  3. LASIX [Suspect]
     Dosage: 40 MG, QD
     Route: 048
  4. COTAREG [Suspect]
     Dosage: 80 MG/DAY
     Route: 048
     Dates: start: 20061024, end: 20061030

REACTIONS (8)
  - BLOOD CREATININE INCREASED [None]
  - BLOOD SODIUM DECREASED [None]
  - BLOOD URIC ACID INCREASED [None]
  - CREATININE RENAL CLEARANCE DECREASED [None]
  - DIZZINESS [None]
  - HYPONATRAEMIA [None]
  - MALAISE [None]
  - RENAL FAILURE ACUTE [None]
